FAERS Safety Report 16608674 (Version 9)
Quarter: 2020Q3

REPORT INFORMATION
  Report Type: Spontaneous
  Country: US (occurrence: US)
  Receive Date: 20190722
  Receipt Date: 20200730
  Transmission Date: 20201102
  Serious: No
  Sender: FDA-Public Use
  Company Number: US-PFIZER INC-2019298262

PATIENT
  Age: 62 Year
  Sex: Female
  Weight: 61 kg

DRUGS (10)
  1. NEURONTIN [Suspect]
     Active Substance: GABAPENTIN
     Indication: PAIN IN EXTREMITY
     Dosage: 7200 MG, DAILY
  2. NEURONTIN [Suspect]
     Active Substance: GABAPENTIN
     Dosage: 5600 MG, DAILY (SEVEN 800MG TABLETS, OVER THE YEARS IT WAS INCREASED)
  3. NEURONTIN [Suspect]
     Active Substance: GABAPENTIN
     Indication: POLYNEUROPATHY
     Dosage: UNK
     Dates: start: 2003
  4. LYRICA [Concomitant]
     Active Substance: PREGABALIN
     Dosage: UNK (1?2 YEARS AGO)
     Dates: start: 2017
  5. NEURONTIN [Suspect]
     Active Substance: GABAPENTIN
     Indication: PARAESTHESIA
     Dosage: UNK
     Dates: start: 2002
  6. NEURONTIN [Suspect]
     Active Substance: GABAPENTIN
     Dosage: UNK (DOSE REDUCTION)
  7. NEURONTIN [Suspect]
     Active Substance: GABAPENTIN
     Dosage: 4 G, DAILY
  8. LYRICA [Concomitant]
     Active Substance: PREGABALIN
     Dosage: UNK (STARTED 6 MONTHS LATER OF FIRST DOSAGE REGIMEN)
  9. NEURONTIN [Suspect]
     Active Substance: GABAPENTIN
     Indication: NEUROPATHY PERIPHERAL
     Dosage: 400 MG, UNK (GRADUALLY REDUCED )
  10. NEURONTIN [Suspect]
     Active Substance: GABAPENTIN
     Dosage: 5600 MG, DAILY

REACTIONS (4)
  - Product use in unapproved indication [Unknown]
  - Off label use [Unknown]
  - Drug effective for unapproved indication [Unknown]
  - Prescribed overdose [Unknown]

NARRATIVE: CASE EVENT DATE: 2002
